FAERS Safety Report 24025730 (Version 6)
Quarter: 2024Q3

REPORT INFORMATION
  Report Type: Report from Study
  Country: IT (occurrence: IT)
  Receive Date: 20240628
  Receipt Date: 20240710
  Transmission Date: 20241016
  Serious: No
  Sender: ROCHE
  Company Number: IT-ROCHE-3353979

PATIENT
  Age: 47 Year
  Sex: Female
  Weight: 62.0 kg

DRUGS (11)
  1. ALECTINIB [Suspect]
     Active Substance: ALECTINIB
     Indication: Lung cancer metastatic
     Route: 048
     Dates: start: 20220315
  2. LACTULOSE [Concomitant]
     Active Substance: LACTULOSE
     Indication: Constipation
     Route: 048
     Dates: start: 20220407
  3. LEVOFLOXACIN [Concomitant]
     Active Substance: LEVOFLOXACIN
     Indication: Upper respiratory tract infection
     Route: 048
     Dates: start: 20230221, end: 20230225
  4. CHOLECALCIFEROL [Concomitant]
     Active Substance: CHOLECALCIFEROL
     Dosage: 1 OTHER
     Route: 048
     Dates: start: 20230228, end: 20231016
  5. ENTEROLACTIS PLUS [Concomitant]
     Indication: Constipation
     Dosage: 1 CAPSULE
     Route: 048
     Dates: start: 20230327, end: 20230811
  6. OXYCODONE [Concomitant]
     Active Substance: OXYCODONE
     Route: 048
     Dates: start: 20230612, end: 20230717
  7. ACETAMINOPHEN\OXYCODONE HYDROCHLORIDE [Concomitant]
     Active Substance: ACETAMINOPHEN\OXYCODONE HYDROCHLORIDE
     Route: 048
     Dates: start: 20230612, end: 20230803
  8. ROSUVASTATIN [Concomitant]
     Active Substance: ROSUVASTATIN
     Route: 048
     Dates: start: 20230811, end: 20231016
  9. TRISCUDIL [Concomitant]
     Route: 048
     Dates: start: 20230811, end: 20231016
  10. LORLATINIB [Concomitant]
     Active Substance: LORLATINIB
     Dates: start: 20230717, end: 202310
  11. PREGABALIN [Concomitant]
     Active Substance: PREGABALIN
     Route: 048
     Dates: start: 20230612, end: 20230803

REACTIONS (3)
  - Dysgeusia [Recovered/Resolved]
  - Back pain [Recovered/Resolved]
  - Abdominal distension [Recovered/Resolved]

NARRATIVE: CASE EVENT DATE: 20230228
